FAERS Safety Report 6032262-1 (Version None)
Quarter: 2008Q4

REPORT INFORMATION
  Report Type: 
  Country: None (occurrence: None)
  Receive Date: 20081229
  Receipt Date: 20081208
  Transmission Date: 20090506
  Serious: Yes (Other)
  Sender: FDA-Public Use
  Company Number: CART-1000020

PATIENT
  Age: 48 Year
  Sex: Male

DRUGS (1)
  1. CARTICEL [Suspect]
     Indication: CARTILAGE INJURY
     Dosage: INTRA-ARTICULAR
     Route: 014
     Dates: start: 20081105, end: 20081105

REACTIONS (1)
  - POST PROCEDURAL INFECTION [None]
